FAERS Safety Report 21185264 (Version 1)
Quarter: 2022Q3

REPORT INFORMATION
  Report Type: Other
  Country: DE (occurrence: None)
  Receive Date: 20220808
  Receipt Date: 20220808
  Transmission Date: 20221027
  Serious: Yes (Disabling, Other)
  Sender: FDA-Public Use
  Company Number: DE-Navinta LLC-000288

PATIENT
  Age: 26 Year
  Sex: Female

DRUGS (3)
  1. PENICILLAMINE [Suspect]
     Active Substance: PENICILLAMINE
     Indication: Hepato-lenticular degeneration
     Dosage: 3 TIMES 600 MG DPA/DAY
  2. PENICILLAMINE [Suspect]
     Active Substance: PENICILLAMINE
     Indication: Hepato-lenticular degeneration
     Dosage: 300 MG
  3. PENICILLAMINE [Suspect]
     Active Substance: PENICILLAMINE
     Indication: Hepato-lenticular degeneration
     Dosage: 450 MG/DAY

REACTIONS (6)
  - Parkinsonism [Recovered/Resolved]
  - Intentional product use issue [Recovered/Resolved]
  - Intentional underdose [Recovered/Resolved]
  - Condition aggravated [Recovered/Resolved]
  - Hepato-lenticular degeneration [Recovered/Resolved]
  - Nephrotic syndrome [Recovered/Resolved]
